FAERS Safety Report 4746865-5 (Version None)
Quarter: 2005Q3

REPORT INFORMATION
  Report Type: 
  Country: None (occurrence: None)
  Receive Date: 20050817
  Receipt Date: 20050811
  Transmission Date: 20060218
  Serious: Yes (Death)
  Sender: FDA-Public Use
  Company Number: FR-ROCHE-413815

PATIENT
  Age: 24 Year
  Sex: Female

DRUGS (4)
  1. CLONAZEPAM [Suspect]
     Indication: DRUG USE FOR UNKNOWN INDICATION
     Route: 048
     Dates: start: 20050216, end: 20050216
  2. SUBUTEX [Suspect]
     Indication: DRUG USE FOR UNKNOWN INDICATION
     Route: 060
     Dates: start: 20050216, end: 20050216
  3. ZYPREXA [Concomitant]
  4. DEPAKOTE [Concomitant]

REACTIONS (3)
  - DRUG ABUSER [None]
  - MULTIPLE DRUG OVERDOSE [None]
  - RESPIRATORY DISTRESS [None]
